FAERS Safety Report 10910921 (Version 1)
Quarter: 2020Q3

REPORT INFORMATION
  Report Type: Report from Study
  Country: CA (occurrence: CA)
  Receive Date: 20150312
  Receipt Date: 20150312
  Transmission Date: 20201104
  Serious: Yes (Hospitalization, Other)
  Sender: FDA-Public Use
  Company Number: CA-JNJFOC-20150112592

PATIENT
  Age: 76 Year
  Sex: Female
  Weight: 56 kg

DRUGS (4)
  1. IBRUTINIB [Suspect]
     Active Substance: IBRUTINIB
     Indication: MANTLE CELL LYMPHOMA
     Route: 048
     Dates: start: 20140129, end: 20150104
  2. LENALIDOMIDE [Suspect]
     Active Substance: LENALIDOMIDE
     Indication: MANTLE CELL LYMPHOMA
     Route: 048
     Dates: start: 20150116
  3. LENALIDOMIDE [Suspect]
     Active Substance: LENALIDOMIDE
     Indication: MANTLE CELL LYMPHOMA
     Route: 048
     Dates: start: 20140129, end: 20150104
  4. IBRUTINIB [Suspect]
     Active Substance: IBRUTINIB
     Indication: MANTLE CELL LYMPHOMA
     Route: 048
     Dates: start: 20150116

REACTIONS (6)
  - Neutrophil count decreased [Recovered/Resolved]
  - Sepsis [Recovered/Resolved]
  - Pyrexia [Not Recovered/Not Resolved]
  - Kidney infection [Recovered/Resolved]
  - Lymphocyte count decreased [Recovered/Resolved]
  - White blood cell count decreased [Recovered/Resolved]

NARRATIVE: CASE EVENT DATE: 20150103
